FAERS Safety Report 4952228-X (Version None)
Quarter: 2006Q1

REPORT INFORMATION
  Report Type: 
  Country: None (occurrence: None)
  Receive Date: 20060320
  Receipt Date: 20060307
  Transmission Date: 20060701
  Serious: Yes (Hospitalization)
  Sender: FDA-Public Use
  Company Number: HQWYE213408MAR06

PATIENT
  Age: 31 Year
  Sex: Female

DRUGS (3)
  1. LEVONORGESTREL + ETHINYL ESTRADIOL [Suspect]
     Indication: ORAL CONTRACEPTION
     Dosage: 1 TABLET 1X PER 1 DAY ORAL
     Route: 048
     Dates: start: 20030301
  2. PHENOBARBITAL TAB [Concomitant]
  3. TEGRETOL [Concomitant]

REACTIONS (4)
  - ABDOMINAL PAIN [None]
  - HAEMANGIOMA OF LIVER [None]
  - NAUSEA [None]
  - VOMITING [None]
